FAERS Safety Report 10566805 (Version 6)
Quarter: 2016Q1

REPORT INFORMATION
  Report Type: Spontaneous
  Country: US (occurrence: US)
  Receive Date: 20141105
  Receipt Date: 20160304
  Transmission Date: 20160525
  Serious: Yes (Hospitalization, Disabling, Other)
  Sender: FDA-Public Use
  Company Number: US-009507513-1411USA001358

PATIENT
  Sex: Female

DRUGS (5)
  1. BONIVA [Suspect]
     Active Substance: IBANDRONATE SODIUM
     Indication: OTOSCLEROSIS
     Dosage: 150 MG, UNKNOWN
     Route: 048
     Dates: start: 20060619, end: 201010
  2. ACTONEL [Suspect]
     Active Substance: RISEDRONATE SODIUM
     Indication: OTOSCLEROSIS
     Dosage: 150 MG, UNKNOWN
     Route: 048
     Dates: start: 20050205, end: 20060509
  3. FOSAMAX [Suspect]
     Active Substance: ALENDRONATE SODIUM
     Indication: OTOSCLEROSIS
     Dosage: 10 MG, UNKNOWN
     Route: 048
     Dates: start: 1995, end: 20030220
  4. FOSAMAX [Suspect]
     Active Substance: ALENDRONATE SODIUM
     Dosage: 10 MG, UNKNOWN
     Route: 048
     Dates: start: 20030221, end: 20030714
  5. FLORICAL [Suspect]
     Active Substance: DIETARY SUPPLEMENT
     Indication: OTOSCLEROSIS
     Dosage: UNK, UNKNOWN
     Route: 065

REACTIONS (26)
  - Low turnover osteopathy [Not Recovered/Not Resolved]
  - Intramedullary rod insertion [Unknown]
  - Upper limb fracture [Unknown]
  - Glucose tolerance impaired [Unknown]
  - Road traffic accident [Unknown]
  - Depression [Unknown]
  - Meniscus injury [Unknown]
  - Facial bones fracture [Unknown]
  - Intervertebral disc disorder [Unknown]
  - Off label use [Unknown]
  - Anxiety [Unknown]
  - Hypercholesterolaemia [Unknown]
  - Post-traumatic stress disorder [Unknown]
  - Vertebral foraminal stenosis [Unknown]
  - Meniscus injury [Unknown]
  - Drug intolerance [Unknown]
  - Meniscus injury [Unknown]
  - Road traffic accident [Unknown]
  - Ligament rupture [Unknown]
  - Enchondromatosis [Unknown]
  - Bursitis [Unknown]
  - Chondromalacia [Unknown]
  - Blood cholesterol increased [Not Recovered/Not Resolved]
  - Femur fracture [Unknown]
  - Atypical femur fracture [Not Recovered/Not Resolved]
  - Osteoporosis [Unknown]

NARRATIVE: CASE EVENT DATE: 1995
